FAERS Safety Report 24382017 (Version 2)
Quarter: 2024Q4

REPORT INFORMATION
  Report Type: Spontaneous
  Country: US (occurrence: US)
  Receive Date: 20241001
  Receipt Date: 20241004
  Transmission Date: 20250114
  Serious: No
  Sender: NOVARTIS
  Company Number: US-002147023-NVSC2024US193668

PATIENT
  Age: 20 Year

DRUGS (1)
  1. KYMRIAH [Suspect]
     Active Substance: TISAGENLECLEUCEL
     Indication: Acute lymphocytic leukaemia
     Dosage: (0.7E8 CAR), ONCE/SINGLE
     Route: 042
     Dates: start: 20240425, end: 20240425

REACTIONS (1)
  - Remission not achieved [Unknown]
